FAERS Safety Report 9815642 (Version 1)
Quarter: 2014Q1

REPORT INFORMATION
  Report Type: Spontaneous
  Country: JP (occurrence: None)
  Receive Date: 20140110
  Receipt Date: 20140110
  Transmission Date: 20141002
  Serious: Yes (Hospitalization)
  Sender: FDA-Public Use
  Company Number: AXC-2013-000696

PATIENT
  Age: 64 Year
  Sex: Male

DRUGS (2)
  1. SUCRALFATE (SUCRALFATE) UNKNOWN [Suspect]
     Indication: PRODUCT USED FOR UNKNOWN INDICATION
     Dosage: UNK, ORAL
     Route: 048
     Dates: start: 200707, end: 201210
  2. CAMOSTAT NESILATE (CAMOSTAT MESILATE) UNKNOWN [Concomitant]

REACTIONS (1)
  - Carbohydrate antigen 19-9 increased [None]
